FAERS Safety Report 5628924-8 (Version None)
Quarter: 2008Q1

REPORT INFORMATION
  Report Type: 
  Country: None (occurrence: None)
  Receive Date: 20080213
  Receipt Date: 20080206
  Transmission Date: 20080703
  Serious: Yes (Hospitalization)
  Sender: FDA-Public Use
  Company Number: 2008SP002672

PATIENT
  Age: 55 Year
  Sex: Male
  Weight: 68 kg

DRUGS (8)
  1. TEMOZOLOMIDE [Suspect]
     Indication: GLIOBLASTOMA MULTIFORME
     Dosage: 75 MG/M2; QD; 100 MG/M2; QD; 135 MG; QD
     Dates: start: 20080118, end: 20080123
  2. TEMOZOLOMIDE [Suspect]
     Indication: GLIOBLASTOMA MULTIFORME
     Dosage: 75 MG/M2; QD; 100 MG/M2; QD; 135 MG; QD
     Dates: start: 20070628
  3. DEXAMETHASONE TAB [Suspect]
     Dosage: 4 MG; BID; PO
     Route: 048
  4. XANAX [Concomitant]
  5. ALBUTEROL [Concomitant]
  6. BIAXIN [Concomitant]
  7. STOOL SOFTENER [Concomitant]
  8. PROVENTIL /00139501/ [Concomitant]

REACTIONS (2)
  - PNEUMONIA [None]
  - PNEUMONITIS [None]
